FAERS Safety Report 11325769 (Version 1)
Quarter: 2015Q3

REPORT INFORMATION
  Report Type: Spontaneous
  Country: US (occurrence: US)
  Receive Date: 20150731
  Receipt Date: 20150731
  Transmission Date: 20151125
  Serious: No
  Sender: FDA-Public Use
  Company Number: US-009507513-1507USA013430

PATIENT
  Sex: Female

DRUGS (1)
  1. IMPLANON [Suspect]
     Active Substance: ETONOGESTREL
     Dosage: UNK
     Route: 059

REACTIONS (4)
  - Product quality issue [Unknown]
  - Nausea [Unknown]
  - Implant site haemorrhage [Unknown]
  - Device breakage [Recovered/Resolved]

NARRATIVE: CASE EVENT DATE: 20150728
